FAERS Safety Report 15806242 (Version 1)
Quarter: 2019Q1

REPORT INFORMATION
  Report Type: Spontaneous
  Country: US (occurrence: US)
  Receive Date: 20190110
  Receipt Date: 20190110
  Transmission Date: 20190417
  Serious: No
  Sender: FDA-Public Use
  Company Number: US-PFIZER INC-2019002418

PATIENT
  Age: 81 Year
  Sex: Male

DRUGS (1)
  1. LATANOPROST. [Suspect]
     Active Substance: LATANOPROST
     Dosage: 2 GTT, 1X/DAY (1 DROP IN BOTH EYES AT BEDTIME)
     Route: 047
     Dates: start: 201812

REACTIONS (3)
  - Product container issue [Unknown]
  - Ocular discomfort [Unknown]
  - Product dose omission [Not Recovered/Not Resolved]

NARRATIVE: CASE EVENT DATE: 201812
